FAERS Safety Report 4653958-X (Version None)
Quarter: 2005Q2

REPORT INFORMATION
  Report Type: 
  Country: None (occurrence: None)
  Receive Date: 20050404
  Receipt Date: 20041201
  Transmission Date: 20051028
  Serious: No
  Sender: FDA-Public Use
  Company Number: USA041285010

PATIENT
  Age: 51 Year
  Sex: Female
  Weight: 64 kg

DRUGS (4)
  1. CYMBALTA [Suspect]
     Indication: BIPOLAR DISORDER
     Dosage: 60 MG AT NOON
     Dates: start: 20041001
  2. WELLBUTRIN [Concomitant]
  3. LORAZEPAM [Concomitant]
  4. XANAX (ALPRAZOLAM DUM) [Concomitant]

REACTIONS (3)
  - ASTHENIA [None]
  - DECREASED ACTIVITY [None]
  - SOMNOLENCE [None]
